FAERS Safety Report 15494592 (Version 6)
Quarter: 2018Q4

REPORT INFORMATION
  Report Type: Spontaneous
  Country: UA (occurrence: UA)
  Receive Date: 20181012
  Receipt Date: 20181016
  Transmission Date: 20190205
  Serious: Yes (Hospitalization)
  Sender: FDA-Public Use
  Company Number: PHHY2018UA116716

PATIENT
  Age: 64 Year
  Sex: Female

DRUGS (3)
  1. METAMIZOLE SODIUM [Suspect]
     Active Substance: METAMIZOLE SODIUM
     Indication: ARTHRITIS
     Dosage: UNK
     Route: 030
  2. DEXAMETHASONE. [Suspect]
     Active Substance: DEXAMETHASONE
     Indication: ARTHRITIS
     Dosage: UNK
     Route: 030
  3. DICLOFENAC [Suspect]
     Active Substance: DICLOFENAC
     Indication: ARTHRITIS
     Dosage: UNK
     Route: 030

REACTIONS (4)
  - Fistula discharge [Recovered/Resolved]
  - Granuloma [Recovered/Resolved]
  - Injection site abscess [Recovered/Resolved]
  - Fistula [Recovered/Resolved]
